FAERS Safety Report 7436924-0 (Version None)
Quarter: 2011Q2

REPORT INFORMATION
  Report Type: 
  Country: None (occurrence: None)
  Receive Date: 20110418
  Receipt Date: 20110405
  Transmission Date: 20111010
  Serious: Yes (Other)
  Sender: FDA-Public Use
  Company Number: 2011AP000659

PATIENT
  Age: 83 Year
  Sex: Female

DRUGS (7)
  1. BENDROFLUMETHIAZIDE [Concomitant]
  2. AMLODIPINE BESYLATE [Concomitant]
  3. CARBAMAZEPINE [Concomitant]
  4. LANSOPRAZOLE [Concomitant]
  5. VITAMIN D [Concomitant]
  6. FUROSEMIDE [Concomitant]
  7. OMEPRAZOLE [Suspect]
     Indication: PRODUCT USED FOR UNKNOWN INDICATION
     Dosage: 20 MG QD,
     Dates: start: 20030101, end: 20091001

REACTIONS (19)
  - EPILEPSY [None]
  - PRESYNCOPE [None]
  - MUSCLE SPASMS [None]
  - BLOOD UREA INCREASED [None]
  - CEREBROVASCULAR DISORDER [None]
  - BILE DUCT STONE [None]
  - HIP FRACTURE [None]
  - DECREASED APPETITE [None]
  - PAIN IN EXTREMITY [None]
  - VOMITING [None]
  - HYPOCALCAEMIA [None]
  - HYPOMAGNESAEMIA [None]
  - DIARRHOEA [None]
  - MALAISE [None]
  - BLOOD CREATININE INCREASED [None]
  - DEPRESSION [None]
  - FALL [None]
  - ASTHENIA [None]
  - CEREBRAL INFARCTION [None]
